FAERS Safety Report 12722702 (Version 1)
Quarter: 2016Q3

REPORT INFORMATION
  Report Type: Report from Study
  Country: US (occurrence: US)
  Receive Date: 20160907
  Receipt Date: 20160907
  Transmission Date: 20161109
  Serious: Yes (Death, Other)
  Sender: FDA-Public Use
  Company Number: US-ROCHE-1827272

PATIENT
  Age: 9 Year
  Sex: Male
  Weight: 29.8 kg

DRUGS (2)
  1. BEVACIZUMAB [Suspect]
     Active Substance: BEVACIZUMAB
     Dosage: ALTERED DOSE
     Route: 065
     Dates: end: 20160306
  2. BEVACIZUMAB [Suspect]
     Active Substance: BEVACIZUMAB
     Indication: MEDULLOBLASTOMA
     Dosage: MOST RECENT DOSE: 03/AUG/2015
     Route: 065
     Dates: start: 20150420

REACTIONS (5)
  - Lymphocyte count decreased [Unknown]
  - Neutrophil count decreased [Unknown]
  - Disease progression [Fatal]
  - Platelet count decreased [Unknown]
  - White blood cell count decreased [Unknown]

NARRATIVE: CASE EVENT DATE: 20160306
